FAERS Safety Report 9850028 (Version 1)
Quarter: 2014Q1

REPORT INFORMATION
  Report Type: Spontaneous
  Country: US (occurrence: None)
  Receive Date: 20140124
  Receipt Date: 20140124
  Transmission Date: 20141002
  Serious: Yes (Other)
  Sender: FDA-Public Use
  Company Number: A1057642A

PATIENT
  Age: 46 Year
  Sex: Female

DRUGS (2)
  1. SENSODYNE PRONAMEL [Suspect]
     Indication: SENSITIVITY OF TEETH
     Route: 004
     Dates: start: 20140120
  2. ANTI-EPILEPTIC MEDICATIONS [Concomitant]

REACTIONS (1)
  - Convulsion [None]
